FAERS Safety Report 4356885-0 (Version None)
Quarter: 2004Q2

REPORT INFORMATION
  Report Type: 
  Country: None (occurrence: None)
  Receive Date: 20040507
  Receipt Date: 20040419
  Transmission Date: 20050107
  Serious: Yes (Other)
  Sender: FDA-Public Use
  Company Number: US_0404102493

PATIENT
  Age: 80 Year
  Sex: Female

DRUGS (2)
  1. EVISTA [Suspect]
     Dates: start: 20000510
  2. MIACALCIN [Concomitant]

REACTIONS (1)
  - PUBIC RAMI FRACTURE [None]
